FAERS Safety Report 22625891 (Version 1)
Quarter: 2023Q2

REPORT INFORMATION
  Report Type: Spontaneous
  Country: BG (occurrence: None)
  Receive Date: 20230621
  Receipt Date: 20230621
  Transmission Date: 20230722
  Serious: Yes (Other)
  Sender: FDA-Public Use
  Company Number: 2023A141683

PATIENT
  Sex: Female

DRUGS (1)
  1. TAGRISSO [Suspect]
     Active Substance: OSIMERTINIB
     Route: 048

REACTIONS (2)
  - Hepatic lesion [Unknown]
  - Disease progression [Unknown]
